FAERS Safety Report 22107427 (Version 1)
Quarter: 2023Q1

REPORT INFORMATION
  Report Type: Spontaneous
  Country: CA (occurrence: CA)
  Receive Date: 20230317
  Receipt Date: 20230317
  Transmission Date: 20230418
  Serious: Yes (Life-Threatening, Hospitalization, Other)
  Sender: FDA-Public Use
  Company Number: CA-JNJFOC-20230324779

PATIENT
  Age: 35 Year
  Sex: Female

DRUGS (46)
  1. ACETAMINOPHEN [Suspect]
     Active Substance: ACETAMINOPHEN
     Indication: Pyrexia
     Route: 048
  2. ACETAMINOPHEN [Suspect]
     Active Substance: ACETAMINOPHEN
     Indication: Body temperature increased
     Route: 048
  3. ACETAMINOPHEN [Suspect]
     Active Substance: ACETAMINOPHEN
     Indication: Body temperature
  4. DEXTROSE [Suspect]
     Active Substance: DEXTROSE
     Indication: Serotonin syndrome
     Route: 042
  5. DEXTROSE [Suspect]
     Active Substance: DEXTROSE
     Indication: Sinus tachycardia
     Route: 065
  6. DEXTROSE [Suspect]
     Active Substance: DEXTROSE
     Indication: Product used for unknown indication
     Route: 041
  7. DIMENHYDRINATE [Suspect]
     Active Substance: DIMENHYDRINATE
     Indication: Vomiting
     Route: 042
  8. DIMENHYDRINATE [Suspect]
     Active Substance: DIMENHYDRINATE
     Indication: Nausea
     Route: 065
  9. DIMENHYDRINATE [Suspect]
     Active Substance: DIMENHYDRINATE
     Indication: Antiemetic supportive care
     Route: 042
  10. DIMENHYDRINATE [Suspect]
     Active Substance: DIMENHYDRINATE
     Indication: Product used for unknown indication
     Route: 042
  11. DIMENHYDRINATE [Suspect]
     Active Substance: DIMENHYDRINATE
     Indication: Hyperemesis gravidarum
     Route: 065
  12. DOXYLAMINE SUCCINATE\PYRIDOXINE HYDROCHLORIDE [Suspect]
     Active Substance: DOXYLAMINE SUCCINATE\PYRIDOXINE HYDROCHLORIDE
     Indication: Vomiting
     Route: 065
  13. DOXYLAMINE SUCCINATE\PYRIDOXINE HYDROCHLORIDE [Suspect]
     Active Substance: DOXYLAMINE SUCCINATE\PYRIDOXINE HYDROCHLORIDE
     Indication: Nausea
     Route: 048
  14. DOXYLAMINE SUCCINATE\PYRIDOXINE HYDROCHLORIDE [Suspect]
     Active Substance: DOXYLAMINE SUCCINATE\PYRIDOXINE HYDROCHLORIDE
     Indication: Hyperemesis gravidarum
     Route: 048
  15. FAMOTIDINE [Suspect]
     Active Substance: FAMOTIDINE
     Indication: Vomiting
     Route: 042
  16. FAMOTIDINE [Suspect]
     Active Substance: FAMOTIDINE
     Indication: Nausea
     Route: 065
  17. FAMOTIDINE [Suspect]
     Active Substance: FAMOTIDINE
     Indication: Product used for unknown indication
     Route: 042
  18. FAMOTIDINE [Suspect]
     Active Substance: FAMOTIDINE
     Indication: Hyperemesis gravidarum
     Route: 042
  19. LORAZEPAM [Suspect]
     Active Substance: LORAZEPAM
     Indication: Product used for unknown indication
     Route: 042
  20. LORAZEPAM [Suspect]
     Active Substance: LORAZEPAM
     Indication: Serotonin syndrome
     Route: 042
  21. LORAZEPAM [Suspect]
     Active Substance: LORAZEPAM
     Route: 048
  22. LORAZEPAM [Suspect]
     Active Substance: LORAZEPAM
     Route: 042
  23. LORAZEPAM [Suspect]
     Active Substance: LORAZEPAM
     Route: 042
  24. LORAZEPAM [Suspect]
     Active Substance: LORAZEPAM
     Route: 042
  25. LORAZEPAM [Suspect]
     Active Substance: LORAZEPAM
     Route: 048
  26. LORAZEPAM [Suspect]
     Active Substance: LORAZEPAM
     Route: 042
  27. LORAZEPAM [Suspect]
     Active Substance: LORAZEPAM
     Route: 042
  28. ONDANSETRON [Suspect]
     Active Substance: ONDANSETRON
     Indication: Vomiting
     Route: 042
  29. ONDANSETRON [Suspect]
     Active Substance: ONDANSETRON
     Indication: Nausea
     Route: 065
  30. ONDANSETRON [Suspect]
     Active Substance: ONDANSETRON
     Indication: Antiemetic supportive care
     Route: 042
  31. ONDANSETRON [Suspect]
     Active Substance: ONDANSETRON
     Indication: Hyperemesis gravidarum
     Route: 042
  32. PROCHLORPERAZINE [Suspect]
     Active Substance: PROCHLORPERAZINE
     Indication: Vomiting
     Route: 065
  33. PROCHLORPERAZINE [Suspect]
     Active Substance: PROCHLORPERAZINE
     Indication: Nausea
     Route: 048
  34. PROCHLORPERAZINE [Suspect]
     Active Substance: PROCHLORPERAZINE
     Indication: Antiemetic supportive care
     Route: 048
  35. PROCHLORPERAZINE [Suspect]
     Active Substance: PROCHLORPERAZINE
     Indication: Hyperemesis gravidarum
     Route: 048
  36. PROCHLORPERAZINE [Suspect]
     Active Substance: PROCHLORPERAZINE
     Indication: Product used for unknown indication
     Route: 048
  37. PROCHLORPERAZINE [Suspect]
     Active Substance: PROCHLORPERAZINE
     Route: 048
  38. PROCHLORPERAZINE [Suspect]
     Active Substance: PROCHLORPERAZINE
     Route: 048
  39. SODIUM BICARBONATE [Suspect]
     Active Substance: SODIUM BICARBONATE
     Indication: Serotonin syndrome
     Route: 065
  40. SODIUM BICARBONATE [Suspect]
     Active Substance: SODIUM BICARBONATE
     Indication: Sinus tachycardia
  41. SUMATRIPTAN [Suspect]
     Active Substance: SUMATRIPTAN
     Indication: Migraine
     Route: 048
  42. SUMATRIPTAN [Suspect]
     Active Substance: SUMATRIPTAN
     Indication: Product used for unknown indication
     Route: 065
  43. SUMATRIPTAN [Suspect]
     Active Substance: SUMATRIPTAN
     Route: 065
  44. DOXYLAMINE [Suspect]
     Active Substance: DOXYLAMINE
     Indication: Antiemetic supportive care
     Route: 048
  45. PYRIDOXINE [Suspect]
     Active Substance: PYRIDOXINE
     Indication: Antiemetic supportive care
     Route: 048
  46. METOCLOPRAMIDE [Suspect]
     Active Substance: METOCLOPRAMIDE
     Indication: Product used for unknown indication
     Route: 065

REACTIONS (14)
  - Serotonin syndrome [Recovered/Resolved]
  - Exposure during pregnancy [Recovered/Resolved]
  - Sinus tachycardia [Recovered/Resolved]
  - Foetal heart rate abnormal [Recovered/Resolved]
  - Drug ineffective [Recovered/Resolved]
  - Maternal exposure during pregnancy [Recovered/Resolved]
  - Body temperature increased [Recovered/Resolved]
  - Emotional distress [Recovered/Resolved]
  - Hyperhidrosis [Recovered/Resolved]
  - Hypertonia [Recovered/Resolved]
  - Myalgia [Recovered/Resolved]
  - Tachycardia [Recovered/Resolved]
  - Tremor [Recovered/Resolved]
  - Anaphylactic reaction [Recovered/Resolved]
